FAERS Safety Report 21479693 (Version 1)
Quarter: 2022Q4

REPORT INFORMATION
  Report Type: Report from Study
  Country: JP (occurrence: JP)
  Receive Date: 20221019
  Receipt Date: 20221019
  Transmission Date: 20230113
  Serious: Yes (Hospitalization)
  Sender: FDA-Public Use
  Company Number: JP-PFIZER INC-PV202200081868

PATIENT
  Age: 77 Year
  Sex: Male
  Weight: 50 kg

DRUGS (7)
  1. NIRMATRELVIR\RITONAVIR [Suspect]
     Active Substance: NIRMATRELVIR\RITONAVIR
     Indication: COVID-19 treatment
     Dosage: [PF-07321332 150 MG]/[RITONAVIR 100 MG]; SINGLE
     Dates: start: 20220815, end: 20220815
  2. CALCIUM CHLORIDE ANHYDROUS\POTASSIUM CHLORIDE\SODIUM CHLORIDE\SODIUM L [Concomitant]
     Active Substance: CALCIUM CHLORIDE ANHYDROUS\POTASSIUM CHLORIDE\SODIUM CHLORIDE\SODIUM LACTATE
     Indication: COVID-19
     Dosage: UNK
     Dates: start: 20220815, end: 20220815
  3. HERBALS [Concomitant]
     Active Substance: HERBALS
     Indication: COVID-19
     Dosage: UNK
     Route: 048
     Dates: start: 20220815, end: 202208
  4. BIOFERMIN [BIFIDOBACTERIUM NOS] [Concomitant]
     Indication: COVID-19
     Dosage: UNK
     Route: 048
     Dates: start: 202208, end: 20220904
  5. ASPIRIN [Concomitant]
     Active Substance: ASPIRIN
     Dosage: UNK
     Route: 048
     Dates: start: 202208
  6. FAMOTIDINE [Concomitant]
     Active Substance: FAMOTIDINE
     Indication: Illness
     Dosage: UNK
     Route: 048
     Dates: start: 202208, end: 20220826
  7. POTASSIUM ASPARTATE [Concomitant]
     Active Substance: POTASSIUM ASPARTATE
     Indication: Illness
     Dosage: UNK
     Route: 048
     Dates: start: 202208, end: 20220915

REACTIONS (2)
  - Immobilisation syndrome [Recovering/Resolving]
  - Condition aggravated [Recovering/Resolving]

NARRATIVE: CASE EVENT DATE: 20220826
